FAERS Safety Report 14843634 (Version 1)
Quarter: 2018Q2

REPORT INFORMATION
  Report Type: Spontaneous
  Country: DE (occurrence: DE)
  Receive Date: 20180503
  Receipt Date: 20180503
  Transmission Date: 20180711
  Serious: Yes (Other)
  Sender: FDA-Public Use
  Company Number: DE-MYLANLABS-2018M1028723

PATIENT
  Age: 64 Year
  Sex: Male

DRUGS (3)
  1. DOXORUBICIN [Suspect]
     Active Substance: DOXORUBICIN
     Indication: PRIMARY EFFUSION LYMPHOMA
     Dosage: 40 MG/M2, UNK
     Route: 065
  2. RITUXIMAB. [Suspect]
     Active Substance: RITUXIMAB
     Indication: PRIMARY EFFUSION LYMPHOMA
     Dosage: 300 MG, UNK, DOSAGE FORM: UNSPECIFIED
     Route: 065
  3. BORTEZOMIB [Suspect]
     Active Substance: BORTEZOMIB
     Indication: PRIMARY EFFUSION LYMPHOMA
     Dosage: 1.3 MG/M2, UNK, DOSAGE FORM: LYOPHILIZED POWDER
     Route: 042

REACTIONS (3)
  - Off label use [Unknown]
  - Polyneuropathy [Unknown]
  - Neutropenia [Unknown]
